FAERS Safety Report 13363810 (Version 2)
Quarter: 2017Q1

REPORT INFORMATION
  Report Type: Spontaneous
  Country: FR (occurrence: FR)
  Receive Date: 20170323
  Receipt Date: 20170331
  Transmission Date: 20170429
  Serious: Yes (Other)
  Sender: FDA-Public Use
  Company Number: FR-JNJFOC-20170321662

PATIENT
  Age: 44 Year
  Sex: Male

DRUGS (4)
  1. HALDOL DECANOAS [Suspect]
     Active Substance: HALOPERIDOL DECANOATE
     Indication: PRODUCT USED FOR UNKNOWN INDICATION
     Route: 030
     Dates: start: 2012
  2. HALDOL DECANOAS [Suspect]
     Active Substance: HALOPERIDOL DECANOATE
     Indication: PRODUCT USED FOR UNKNOWN INDICATION
     Route: 030
     Dates: start: 2008, end: 2012
  3. HALDOL DECANOAS [Suspect]
     Active Substance: HALOPERIDOL DECANOATE
     Indication: PRODUCT USED FOR UNKNOWN INDICATION
     Route: 030
     Dates: start: 2004, end: 2008
  4. HALDOL DECANOAS [Suspect]
     Active Substance: HALOPERIDOL DECANOATE
     Indication: PRODUCT USED FOR UNKNOWN INDICATION
     Route: 030
     Dates: start: 1998, end: 2004

REACTIONS (14)
  - Necrospermia [Not Recovered/Not Resolved]
  - Vision blurred [Unknown]
  - Gait disturbance [Recovering/Resolving]
  - Muscle spasms [Unknown]
  - Thrombocytopenia [Not Recovered/Not Resolved]
  - Hyperhidrosis [Unknown]
  - Memory impairment [Recovering/Resolving]
  - Hypospermia [Not Recovered/Not Resolved]
  - Trismus [Unknown]
  - Erectile dysfunction [Not Recovered/Not Resolved]
  - Loss of libido [Not Recovered/Not Resolved]
  - Hypercholesterolaemia [Unknown]
  - Oligospermia [Not Recovered/Not Resolved]
  - Impatience [Unknown]

NARRATIVE: CASE EVENT DATE: 1998
